FAERS Safety Report 6280495-1 (Version None)
Quarter: 2009Q3

REPORT INFORMATION
  Report Type: 
  Country: None (occurrence: None)
  Receive Date: 20090724
  Receipt Date: 20080728
  Transmission Date: 20100115
  Serious: No
  Sender: FDA-Public Use
  Company Number: A0739883A

PATIENT
  Sex: Male

DRUGS (2)
  1. AVANDIA [Suspect]
     Indication: DRUG USE FOR UNKNOWN INDICATION
     Dosage: 2MG UNKNOWN
     Route: 048
     Dates: end: 20080728
  2. MULTIPLE MEDICATIONS [Concomitant]

REACTIONS (3)
  - ABNORMAL BEHAVIOUR [None]
  - DEPRESSED MOOD [None]
  - DIZZINESS [None]
